FAERS Safety Report 7086538-X (Version None)
Quarter: 2010Q4

REPORT INFORMATION
  Report Type: 
  Country: None (occurrence: None)
  Receive Date: 20101105
  Receipt Date: 20101101
  Transmission Date: 20110411
  Serious: Yes (Death, Other)
  Sender: FDA-Public Use
  Company Number: JP-CELGENEUS-087-21880-10110108

PATIENT
  Sex: Female

DRUGS (2)
  1. REVLIMID [Suspect]
     Indication: MULTIPLE MYELOMA
     Route: 048
     Dates: start: 20100901
  2. REVLIMID [Suspect]
     Route: 048
     Dates: start: 20101015, end: 20101018

REACTIONS (2)
  - DEATH [None]
  - NEUTROPHIL COUNT DECREASED [None]
